FAERS Safety Report 7362225-5 (Version None)
Quarter: 2011Q1

REPORT INFORMATION
  Report Type: 
  Country: None (occurrence: None)
  Receive Date: 20110318
  Receipt Date: 20110307
  Transmission Date: 20110831
  Serious: Yes (Hospitalization, Other)
  Sender: FDA-Public Use
  Company Number: PHHY2011US18772

PATIENT
  Sex: Male

DRUGS (15)
  1. FIORICET [Concomitant]
     Dosage: 2 TABLETS 4 TIMES DAILY
     Route: 048
  2. PROSCAR [Concomitant]
     Dosage: 5 MG, 01 TABLET IN MORNING
     Route: 048
  3. BACTRIM DS [Concomitant]
     Route: 048
  4. SENOKOT [Concomitant]
     Dosage: 8.8 MG, BID
     Route: 048
  5. EXJADE [Suspect]
     Dosage: 125 MG, QD
     Route: 048
     Dates: start: 20090817
  6. ROXICODONE [Concomitant]
     Indication: PAIN
     Dosage: 5 MG, 1 TABLET EVERY 4 HOURS
     Route: 048
  7. ZOVIRAX [Concomitant]
     Dosage: 800 MG, TID
     Route: 048
  8. FOSAMAX [Concomitant]
     Indication: OSTEOGENESIS IMPERFECTA
     Dosage: 70 MG, ONCE A WEEK
     Route: 048
  9. PRILOSEC [Concomitant]
     Dosage: 20 MG, EVERY MORNING
  10. VANTIN [Concomitant]
     Dosage: 200 MG, 0.5 TABLET, 2 TIMES DAILY FOR 7 DAYS
     Route: 048
  11. CHRONULAC [Concomitant]
     Dosage: 15 ML, BID
     Route: 048
  12. OSCAL [Concomitant]
     Dosage: 1 TABLET TWO TIMES DAILY
     Route: 048
  13. ACETAMINOPHEN [Concomitant]
     Indication: PAIN
     Dosage: 325 MG, 2 TABLETS EVERY 4 HOURS
     Route: 048
  14. COLACE [Concomitant]
     Dosage: 300 MG, BID
     Route: 048
  15. VITAMIN D [Concomitant]
     Dosage: 1000 UNK, QD
     Route: 048

REACTIONS (2)
  - FUNGAL OESOPHAGITIS [None]
  - APLASTIC ANAEMIA [None]
